FAERS Safety Report 20375623 (Version 1)
Quarter: 2022Q1

REPORT INFORMATION
  Report Type: Spontaneous
  Country: CA (occurrence: CA)
  Receive Date: 20220125
  Receipt Date: 20220125
  Transmission Date: 20220423
  Serious: Yes (Life-Threatening, Hospitalization, Other)
  Sender: FDA-Public Use
  Company Number: CA-TEVA-2022-CA-2001344

PATIENT
  Age: 74 Year
  Sex: Female
  Weight: 75 kg

DRUGS (36)
  1. DOXORUBICIN HYDROCHLORIDE [Suspect]
     Active Substance: DOXORUBICIN HYDROCHLORIDE
     Route: 042
  2. DOXORUBICIN HYDROCHLORIDE [Suspect]
     Active Substance: DOXORUBICIN HYDROCHLORIDE
     Route: 042
  3. DOXORUBICIN HYDROCHLORIDE [Suspect]
     Active Substance: DOXORUBICIN HYDROCHLORIDE
     Route: 042
  4. VINCRISTINE SULFATE [Suspect]
     Active Substance: VINCRISTINE SULFATE
     Route: 042
  5. VINCRISTINE SULFATE [Suspect]
     Active Substance: VINCRISTINE SULFATE
     Route: 042
  6. VINCRISTINE SULFATE [Suspect]
     Active Substance: VINCRISTINE SULFATE
     Route: 042
  7. CYCLOPHOSPHAMIDE [Suspect]
     Active Substance: CYCLOPHOSPHAMIDE
     Route: 042
  8. CYCLOPHOSPHAMIDE [Suspect]
     Active Substance: CYCLOPHOSPHAMIDE
     Route: 042
  9. CYCLOPHOSPHAMIDE [Suspect]
     Active Substance: CYCLOPHOSPHAMIDE
     Route: 042
  10. CYCLOPHOSPHAMIDE [Suspect]
     Active Substance: CYCLOPHOSPHAMIDE
     Route: 042
  11. RITUXIMAB [Suspect]
     Active Substance: RITUXIMAB
     Route: 058
  12. RITUXIMAB [Suspect]
     Active Substance: RITUXIMAB
     Route: 058
  13. RITUXIMAB [Suspect]
     Active Substance: RITUXIMAB
     Route: 058
  14. RITUXIMAB [Suspect]
     Active Substance: RITUXIMAB
     Route: 058
  15. ACETAMINOPHEN [Concomitant]
     Active Substance: ACETAMINOPHEN
  16. ACETAMINOPHEN\CAFFEINE\CODEINE [Concomitant]
     Active Substance: ACETAMINOPHEN\CAFFEINE\CODEINE
  17. ASPIRIN [Concomitant]
     Active Substance: ASPIRIN
  18. ACYCLOVIR [Concomitant]
     Active Substance: ACYCLOVIR
  19. ANTACID [Concomitant]
     Active Substance: ALUMINUM HYDROXIDE\CALCIUM CARBONATE\DIMETHICONE\MAGNESIUM HYDROXIDE
  20. DIPHENHYDRAMINE [Concomitant]
     Active Substance: DIPHENHYDRAMINE
  21. ELIQUIS [Concomitant]
     Active Substance: APIXABAN
  22. HUMALOG [Concomitant]
     Active Substance: INSULIN LISPRO
  23. HYDROCORTISONE [Concomitant]
     Active Substance: HYDROCORTISONE
  24. HYDROMORPHONE [Concomitant]
     Active Substance: HYDROMORPHONE
  25. LANSOPRAZOLE [Concomitant]
     Active Substance: LANSOPRAZOLE
  26. LEVOTHYROXINE [Concomitant]
     Active Substance: LEVOTHYROXINE
  27. METOPROLOL [Concomitant]
     Active Substance: METOPROLOL
  28. NITROGLYCERIN [Concomitant]
     Active Substance: NITROGLYCERIN
  29. OLANZAPINE [Concomitant]
     Active Substance: OLANZAPINE
  30. ONDANSETRON [Concomitant]
     Active Substance: ONDANSETRON
  31. POTASSIUM CHLORIDE [Concomitant]
     Active Substance: POTASSIUM CHLORIDE
  32. ROSUVASTATIN [Concomitant]
     Active Substance: ROSUVASTATIN
  33. SENNOSIDES [Concomitant]
     Active Substance: SENNOSIDES
  34. VANCOMYCIN [Concomitant]
     Active Substance: VANCOMYCIN
  35. ZOPICLONE [Concomitant]
     Active Substance: ZOPICLONE
  36. sodium bicarbonate/NaCl [Concomitant]

REACTIONS (2)
  - Febrile neutropenia [Recovering/Resolving]
  - Pseudomonal bacteraemia [Recovering/Resolving]
